FAERS Safety Report 7228026-3 (Version None)
Quarter: 2011Q1

REPORT INFORMATION
  Report Type: 
  Country: None (occurrence: None)
  Receive Date: 20110114
  Receipt Date: 20100525
  Transmission Date: 20110831
  Serious: Yes (Other)
  Sender: FDA-Public Use
  Company Number: US-BAYER-201023977NA

PATIENT
  Sex: Female

DRUGS (1)
  1. AVELOX [Suspect]
     Indication: SINUSITIS
     Dosage: 400 MG, UNK
     Route: 048
     Dates: end: 20100301

REACTIONS (4)
  - RASH [None]
  - SWOLLEN TONGUE [None]
  - EAR DISCOMFORT [None]
  - ANAPHYLACTIC REACTION [None]
